FAERS Safety Report 17682562 (Version 1)
Quarter: 2020Q2

REPORT INFORMATION
  Report Type: Spontaneous
  Country: FI (occurrence: FI)
  Receive Date: 20200418
  Receipt Date: 20200418
  Transmission Date: 20200714
  Serious: Yes (Hospitalization)
  Sender: FDA-Public Use
  Company Number: NVSC2020FI104169

PATIENT
  Age: 30 Year
  Sex: Male

DRUGS (1)
  1. OXCARBAZEPINE. [Suspect]
     Active Substance: OXCARBAZEPINE
     Indication: EPILEPSY
     Dosage: 450 MG, BID
     Route: 065
     Dates: start: 20190405

REACTIONS (4)
  - Drug reaction with eosinophilia and systemic symptoms [Unknown]
  - Rash [Unknown]
  - Pyrexia [Unknown]
  - Facial paralysis [Recovered/Resolved]
